FAERS Safety Report 13585042 (Version 1)
Quarter: 2017Q2

REPORT INFORMATION
  Report Type: Report from Study
  Country: US (occurrence: US)
  Receive Date: 20170526
  Receipt Date: 20170526
  Transmission Date: 20170830
  Serious: Yes (Death, Other)
  Sender: FDA-Public Use
  Company Number: US-GILEAD-2017-0274399

PATIENT
  Age: 76 Year
  Sex: Female

DRUGS (6)
  1. TEMAZEPAM. [Concomitant]
     Active Substance: TEMAZEPAM
  2. SYNTHROID [Concomitant]
     Active Substance: LEVOTHYROXINE SODIUM
  3. CARVEDILOL. [Concomitant]
     Active Substance: CARVEDILOL
  4. LOSARTAN. [Concomitant]
     Active Substance: LOSARTAN
  5. PREDNISONE. [Concomitant]
     Active Substance: PREDNISONE
  6. AMBRISENTAN [Suspect]
     Active Substance: AMBRISENTAN
     Indication: PULMONARY HYPERTENSION
     Dosage: 10 MG, QD
     Route: 065
     Dates: start: 20170227

REACTIONS (1)
  - Death [Fatal]

NARRATIVE: CASE EVENT DATE: 20170412
